FAERS Safety Report 6889985-1 (Version None)
Quarter: 2010Q3

REPORT INFORMATION
  Report Type: 
  Country: None (occurrence: None)
  Receive Date: 20100730
  Receipt Date: 20080624
  Transmission Date: 20110219
  Serious: Yes (Other)
  Sender: FDA-Public Use
  Company Number: US-PFIZER INC-2008053450

PATIENT
  Sex: Female
  Weight: 102.1 kg

DRUGS (12)
  1. LIPITOR [Suspect]
     Indication: BLOOD CHOLESTEROL INCREASED
  2. CRESTOR [Suspect]
     Indication: BLOOD CHOLESTEROL INCREASED
  3. NIASPAN [Suspect]
     Indication: BLOOD CHOLESTEROL INCREASED
     Route: 048
     Dates: start: 20080509, end: 20080510
  4. SALBUTAMOL SULFATE [Concomitant]
     Indication: CHRONIC OBSTRUCTIVE PULMONARY DISEASE
     Route: 048
  5. DILTIAZEM [Concomitant]
     Indication: CARDIAC DISORDER
     Dosage: AT BEDTIME
     Route: 048
  6. SERETIDE [Concomitant]
     Indication: CHRONIC OBSTRUCTIVE PULMONARY DISEASE
     Dosage: 250/50,1 PUFF BID
     Route: 055
  7. ACETYLSALICYLIC ACID SRT [Concomitant]
     Indication: ANTICOAGULANT THERAPY
     Route: 048
  8. VITAMINS [Concomitant]
     Dosage: 1 DOSAGE FORM IN 1 DAY
     Route: 048
  9. VITAMIN E [Concomitant]
     Route: 048
  10. FISH OIL [Concomitant]
     Route: 048
  11. METFORMIN HCL [Concomitant]
     Indication: DIABETES MELLITUS
     Route: 048
  12. METRONIDAZOLE [Concomitant]
     Indication: ROSACEA
     Route: 061

REACTIONS (4)
  - DYSPNOEA [None]
  - FLUSHING [None]
  - MYALGIA [None]
  - VIITH NERVE PARALYSIS [None]
